FAERS Safety Report 6506241-1 (Version None)
Quarter: 2009Q4

REPORT INFORMATION
  Report Type: 
  Country: None (occurrence: None)
  Receive Date: 20091218
  Receipt Date: 20091210
  Transmission Date: 20100525
  Serious: Yes (Other)
  Sender: FDA-Public Use
  Company Number: PHHO2009US15524

PATIENT
  Age: 31 Year
  Sex: Male
  Weight: 68.1 kg

DRUGS (5)
  1. AFINITOR [Suspect]
     Indication: THYROID CANCER
     Dosage: 10 MG, UNK
     Route: 048
     Dates: start: 20090915, end: 20091210
  2. CALCITRIOL [Concomitant]
     Dosage: UNK
     Dates: start: 20090818
  3. CALCIUM CARBONATE [Concomitant]
     Dosage: UNK
     Dates: start: 20090818
  4. LEVOTHYROXINE SODIUM [Concomitant]
     Dosage: UNK
     Dates: start: 20091030
  5. LIDOCAINE [Concomitant]
     Dosage: UNK
     Dates: start: 20091013

REACTIONS (3)
  - BLOOD AMYLASE INCREASED [None]
  - LIPASE INCREASED [None]
  - MUCOSAL INFLAMMATION [None]
